FAERS Safety Report 25878495 (Version 1)
Quarter: 2025Q4

REPORT INFORMATION
  Report Type: Report from Study
  Country: US (occurrence: US)
  Receive Date: 20251003
  Receipt Date: 20251003
  Transmission Date: 20260118
  Serious: Yes (Other)
  Sender: UCB
  Company Number: US-UCBSA-2024054952

PATIENT
  Sex: Male
  Weight: 68.6 kg

DRUGS (39)
  1. FINTEPLA [Suspect]
     Active Substance: FENFLURAMINE
     Indication: Lennox-Gastaut syndrome
     Dosage: 3.1 MILLILITER, 2X/DAY (BID)
     Dates: start: 20241004
  2. FINTEPLA [Suspect]
     Active Substance: FENFLURAMINE
     Dosage: 6 MILLILITER, 2X/DAY (BID)
  3. FINTEPLA [Suspect]
     Active Substance: FENFLURAMINE
     Dosage: 3.1 MILLILITER, 2X/DAY (BID)
  4. FINTEPLA [Suspect]
     Active Substance: FENFLURAMINE
     Dosage: 3.1 MILLILITER, 2X/DAY (BID)
  5. FINTEPLA [Suspect]
     Active Substance: FENFLURAMINE
     Dosage: 14 MILLIGRAM PER DAY
  6. FINTEPLA [Suspect]
     Active Substance: FENFLURAMINE
     Dosage: 3.1 MILLILITER, 2X/DAY (BID)
  7. FINTEPLA [Suspect]
     Active Substance: FENFLURAMINE
     Dosage: 14 MILLIGRAM PER DAY
  8. FINTEPLA [Suspect]
     Active Substance: FENFLURAMINE
     Dosage: 3.1 MILLILITER, 2X/DAY (BID)
     Route: 048
  9. GABAPENTIN [Suspect]
     Active Substance: GABAPENTIN
     Indication: Product used for unknown indication
  10. FYCOMPA [Suspect]
     Active Substance: PERAMPANEL
     Indication: Seizure
     Dosage: 8 MILLIGRAM, ONCE DAILY (QD)
     Route: 048
  11. FYCOMPA [Suspect]
     Active Substance: PERAMPANEL
     Dosage: 6 MILLIGRAM, ONCE DAILY (QD)
     Route: 048
  12. ZONISAMIDE [Concomitant]
     Active Substance: ZONISAMIDE
     Indication: Seizure
  13. PREDNISONE [Concomitant]
     Active Substance: PREDNISONE
     Indication: Illness
     Dosage: 2 MILLIGRAM, 2X/DAY (BID)
     Route: 048
  14. PREDNISONE [Concomitant]
     Active Substance: PREDNISONE
     Indication: Injury
     Dosage: ONE TABLET ALONG WITH ONE 1 MG TABLET
     Route: 048
  15. CLOBAZAM [Concomitant]
     Active Substance: CLOBAZAM
     Indication: Product used for unknown indication
  16. DDAVP/DESMOPRESSIN [Concomitant]
     Indication: Product used for unknown indication
     Dosage: 2 TABLETS IN AM, 2 ABLETS AT 1130ARN, 2 TABLETS AT 3:30PM, TAKES 5 TABLETS AT 8PM, TAKES 6 TABLETS A
  17. LEVOTHYROXINE [Concomitant]
     Active Substance: LEVOTHYROXINE
     Indication: Product used for unknown indication
  18. TRAZODONE HCL [Concomitant]
     Active Substance: TRAZODONE HYDROCHLORIDE
     Indication: Sleep disorder
  19. ONFI [Concomitant]
     Active Substance: CLOBAZAM
     Indication: Seizure
     Dosage: 5 MILLIGRAM, 2X/DAY (BID)
  20. ONFI [Concomitant]
     Active Substance: CLOBAZAM
     Dosage: 0.5 TABLETS (5 MG TOTAL) BY MOUTH EVERY MORNING AND 1 TABLET (10 MG TOTAL) EVERY EVENING
  21. BANZEL [Concomitant]
     Active Substance: RUFINAMIDE
     Indication: Seizure
     Dosage: 1600 MILLIGRAM, 2X/DAY (BID)
     Route: 048
  22. DEPAKOTE [Concomitant]
     Active Substance: DIVALPROEX SODIUM
     Indication: Product used for unknown indication
     Dosage: UNK
  23. ADAPALENE [Concomitant]
     Active Substance: ADAPALENE
     Indication: Product used for unknown indication
     Dosage: 1 G BY APPLY TO FACE ROUTE NIGHTLY.
  24. ALBUTEROL SULFATE [Concomitant]
     Active Substance: ALBUTEROL SULFATE
     Indication: Product used for unknown indication
     Dosage: INHALE 180 MCG INTO THE LUNGS EVERY 4 (FOUR) HOURS AS NEEDED.
  25. ALCOHOL (ALCOHOL) [Concomitant]
     Active Substance: ALCOHOL
     Indication: Product used for unknown indication
     Dosage: UNK
  26. CLEOCIN T [Concomitant]
     Active Substance: CLINDAMYCIN PHOSPHATE
     Indication: Product used for unknown indication
     Dosage: 1 GRAM
     Route: 061
  27. DECADRON [Concomitant]
     Active Substance: DEXAMETHASONE
     Indication: Product used for unknown indication
     Dosage: INJECT 1 ML (4 MG TOTAL) INTO THE MUSCLE,
     Route: 030
  28. SOLU-CORTEF [Concomitant]
     Active Substance: HYDROCORTISONE SODIUM SUCCINATE
     Indication: Product used for unknown indication
     Dosage: 1 MILLILITER AS NEEDED
     Route: 030
  29. SYNTHROID [Concomitant]
     Active Substance: LEVOTHYROXINE SODIUM
     Indication: Product used for unknown indication
     Dosage: 200 MICROGRAM, ONCE DAILY (QD)
     Route: 048
  30. SYNTHROID [Concomitant]
     Active Substance: LEVOTHYROXINE SODIUM
     Dosage: 25 MICROGRAM, ONCE DAILY (QD)
     Route: 048
  31. CANNABIDIOL\HERBALS [Concomitant]
     Active Substance: CANNABIDIOL\HERBALS
     Indication: Product used for unknown indication
     Dosage: 500 MG PER BOTTLE 8 DROPS THREE TIMES DAILY
  32. POLYETHYLENE GLYCOLS [Concomitant]
     Active Substance: POLYETHYLENE GLYCOLS
     Indication: Product used for unknown indication
     Dosage: 17 GRAM AS NEEDED
  33. BACTRIM DS [Concomitant]
     Active Substance: SULFAMETHOXAZOLE\TRIMETHOPRIM
     Indication: Product used for unknown indication
     Dosage: TAKE 1 TABLET BY MOUTH 2 (TWO) TIMES DAILY
  34. DESYREL [Concomitant]
     Active Substance: TRAZODONE HYDROCHLORIDE
     Indication: Product used for unknown indication
     Dosage: 50 MILLIGRAM, ONCE DAILY (QD)
     Route: 048
  35. DESYREL [Concomitant]
     Active Substance: TRAZODONE HYDROCHLORIDE
     Dosage: 100 MILLIGRAM, ONCE DAILY (QD)
     Route: 048
  36. ZONEGRAN [Concomitant]
     Active Substance: ZONISAMIDE
     Indication: Product used for unknown indication
     Dosage: 200 MILLIGRAM, 2X/DAY (BID)
     Route: 048
     Dates: start: 20250214
  37. ZONEGRAN [Concomitant]
     Active Substance: ZONISAMIDE
     Dosage: 250 MILLIGRAM, 2X/DAY (BID)
     Route: 048
  38. ROXICODONE [Concomitant]
     Active Substance: OXYCODONE HYDROCHLORIDE
     Indication: Product used for unknown indication
     Dosage: UNK
  39. OXYCODONE [Concomitant]
     Active Substance: OXYCODONE
     Indication: Product used for unknown indication
     Dosage: 5 MILLIGRAM EVERY 4 HOURS AS NEEDED
     Route: 048

REACTIONS (25)
  - Seizure [Unknown]
  - Mental impairment [Unknown]
  - Ear infection [Not Recovered/Not Resolved]
  - Constipation [Not Recovered/Not Resolved]
  - Influenza [Not Recovered/Not Resolved]
  - Hypersomnia [Recovering/Resolving]
  - Decreased appetite [Not Recovered/Not Resolved]
  - Weight decreased [Not Recovered/Not Resolved]
  - Sleep disorder [Recovered/Resolved]
  - Movement disorder [Not Recovered/Not Resolved]
  - Middle insomnia [Not Recovered/Not Resolved]
  - Insomnia [Not Recovered/Not Resolved]
  - Agitation [Not Recovered/Not Resolved]
  - Lethargy [Unknown]
  - Viral infection [Unknown]
  - Weight increased [Unknown]
  - Cognitive disorder [Unknown]
  - Stress [Unknown]
  - Behaviour disorder [Unknown]
  - Blood pressure abnormal [Unknown]
  - Contusion [Unknown]
  - Affective disorder [Unknown]
  - Haemorrhage [Unknown]
  - Loss of personal independence in daily activities [Unknown]
  - Therapeutic product effect incomplete [Unknown]

NARRATIVE: CASE EVENT DATE: 20240101
